FAERS Safety Report 12334204 (Version 1)
Quarter: 2016Q2

REPORT INFORMATION
  Report Type: Spontaneous
  Country: US (occurrence: US)
  Receive Date: 20160504
  Receipt Date: 20160504
  Transmission Date: 20160815
  Serious: No
  Sender: FDA-Public Use
  Company Number: US-ABBVIE-16P-163-1570624-00

PATIENT
  Sex: Female

DRUGS (1)
  1. CREON [Suspect]
     Active Substance: PANCRELIPASE AMYLASE\PANCRELIPASE LIPASE\PANCRELIPASE PROTEASE
     Indication: PRODUCT USED FOR UNKNOWN INDICATION
     Route: 065

REACTIONS (7)
  - Treatment noncompliance [Unknown]
  - Feeling abnormal [Unknown]
  - Constipation [Unknown]
  - Asthenia [Unknown]
  - Gastrointestinal disorder [Unknown]
  - Emotional distress [Unknown]
  - Abdominal discomfort [Unknown]
